FAERS Safety Report 18221713 (Version 2)
Quarter: 2020Q4

REPORT INFORMATION
  Report Type: Spontaneous
  Country: US (occurrence: US)
  Receive Date: 20200902
  Receipt Date: 20201202
  Transmission Date: 20210113
  Serious: No
  Sender: FDA-Public Use
  Company Number: US-DECIPHERA PHARMACEUTICALS LLC-2020-US-000349

PATIENT
  Sex: Female
  Weight: 63.49 kg

DRUGS (2)
  1. QINLOCK [Suspect]
     Active Substance: RIPRETINIB
     Indication: GASTROINTESTINAL STROMAL TUMOUR
     Dosage: 150 MILLIGRAM, QD (3 TABLETS DAILY)
     Dates: start: 20200715
  2. QINLOCK [Suspect]
     Active Substance: RIPRETINIB
     Dosage: 150 MILLIGRAM, QD
     Route: 048
     Dates: start: 20200716

REACTIONS (10)
  - Balance disorder [Unknown]
  - Arthralgia [Not Recovered/Not Resolved]
  - Product dose omission issue [Unknown]
  - Abdominal pain upper [Unknown]
  - Palpitations [Unknown]
  - Nausea [Unknown]
  - Fatigue [Unknown]
  - Malaise [Unknown]
  - Burning sensation [Not Recovered/Not Resolved]
  - Product administration interrupted [Unknown]
